FAERS Safety Report 8156141-9 (Version None)
Quarter: 2012Q1

REPORT INFORMATION
  Report Type: 
  Country: None (occurrence: None)
  Receive Date: 20120222
  Receipt Date: 20120214
  Transmission Date: 20120608
  Serious: Yes (Death)
  Sender: FDA-Public Use
  Company Number: NO-JNJFOC-20120209417

PATIENT
  Age: 74 Year
  Sex: Female

DRUGS (5)
  1. BUPRENORPHINE [Suspect]
     Indication: PAIN
     Route: 062
     Dates: end: 20111101
  2. OXYCODONE HCL [Suspect]
     Indication: PAIN
     Route: 048
     Dates: start: 20111101, end: 20111101
  3. TRAMADOL HCL [Suspect]
     Indication: PAIN
     Route: 048
     Dates: end: 20111101
  4. KETORAX [Suspect]
     Indication: PAIN
     Route: 042
     Dates: start: 20111101, end: 20111101
  5. OXYCONTIN [Suspect]
     Indication: PAIN
     Route: 048
     Dates: start: 20111101, end: 20111101

REACTIONS (3)
  - OVERDOSE [None]
  - PNEUMONIA ASPIRATION [None]
  - SEPSIS [None]
